FAERS Safety Report 9945988 (Version 1)
Quarter: 2014Q1

REPORT INFORMATION
  Report Type: Spontaneous
  Country: US (occurrence: US)
  Receive Date: 20140303
  Receipt Date: 20140303
  Transmission Date: 20141002
  Serious: Yes (Other)
  Sender: FDA-Public Use
  Company Number: US-AMGEN-USASP2013083732

PATIENT
  Age: 70 Year
  Sex: Female
  Weight: 47.62 kg

DRUGS (2)
  1. ENBREL [Suspect]
     Indication: RHEUMATOID ARTHRITIS
     Dosage: 25 MG, 2 TIMES/WK
     Route: 058
     Dates: start: 2005
  2. PLAQUENIL                          /00072602/ [Concomitant]
     Dosage: UNK

REACTIONS (1)
  - Sinusitis [Recovered/Resolved]
